FAERS Safety Report 6970436-3 (Version None)
Quarter: 2010Q3

REPORT INFORMATION
  Report Type: 
  Country: None (occurrence: None)
  Receive Date: 20100908
  Receipt Date: 20100831
  Transmission Date: 20110219
  Serious: Yes (Other)
  Sender: FDA-Public Use
  Company Number: IT-ROCHE-521041

PATIENT
  Sex: Male
  Weight: 83 kg

DRUGS (5)
  1. BEVACIZUMAB [Suspect]
     Indication: METASTATIC RENAL CELL CARCINOMA
     Route: 042
     Dates: start: 20050424, end: 20070508
  2. INTERFERON ALFA-2A [Suspect]
     Indication: METASTATIC RENAL CELL CARCINOMA
     Dosage: ON DAY 10, 12, 17 AND 19
     Route: 058
  3. PROLEUKIN [Suspect]
     Indication: METASTATIC RENAL CELL CARCINOMA
     Dosage: DOSE: 1 MIU/M2 ON DAY 8, 9, 15, 16 AND ONCE A DAY FROM DAY 10 TO 12 AND 17 TO 19
     Route: 058
  4. GEMZAR [Suspect]
     Indication: METASTATIC RENAL CELL CARCINOMA
     Dosage: FREQUENCY: ON DAY1 AND 8 EVERY 28 DAYS
     Route: 042
  5. FLUOROURACIL [Suspect]
     Indication: METASTATIC RENAL CELL CARCINOMA
     Dosage: FREQUENCY: ON DAY1 AND 8 EVERY 28 DAYS
     Route: 040

REACTIONS (1)
  - LEUKOENCEPHALOPATHY [None]
